FAERS Safety Report 17151196 (Version 6)
Quarter: 2020Q2

REPORT INFORMATION
  Report Type: Report from Study
  Country: US (occurrence: US)
  Receive Date: 20191213
  Receipt Date: 20200421
  Transmission Date: 20200713
  Serious: Yes (Other)
  Sender: FDA-Public Use
  Company Number: NVSC2019US068414

PATIENT
  Age: 74 Year
  Sex: Female

DRUGS (1)
  1. BEOVU [Suspect]
     Active Substance: BROLUCIZUMAB-DBLL
     Indication: NEOVASCULAR AGE-RELATED MACULAR DEGENERATION
     Dosage: 1 DF, ONCE/SINGLE
     Route: 065
     Dates: start: 20191104

REACTIONS (7)
  - Eye irritation [Recovered/Resolved]
  - Memory impairment [Unknown]
  - Lacrimation increased [Unknown]
  - Fear of falling [Unknown]
  - Epistaxis [Recovered/Resolved]
  - Glaucoma [Unknown]
  - Visual impairment [Unknown]

NARRATIVE: CASE EVENT DATE: 20191104
